FAERS Safety Report 9668714 (Version 1)
Quarter: 2013Q4

REPORT INFORMATION
  Report Type: Spontaneous
  Country: US (occurrence: US)
  Receive Date: 20131105
  Receipt Date: 20131105
  Transmission Date: 20140711
  Serious: No
  Sender: FDA-Public Use
  Company Number: US-009507513-1311USA000490

PATIENT
  Sex: Male

DRUGS (1)
  1. CLARITIN [Suspect]
     Indication: ADVERSE DRUG REACTION
     Dosage: UNK, UNKNOWN
     Route: 048

REACTIONS (3)
  - Dyspepsia [Unknown]
  - Eructation [Unknown]
  - Off label use [Unknown]
